FAERS Safety Report 19829986 (Version 1)
Quarter: 2021Q3

REPORT INFORMATION
  Report Type: Spontaneous
  Country: US (occurrence: US)
  Receive Date: 20210915
  Receipt Date: 20210915
  Transmission Date: 20211014
  Serious: Yes (Other)
  Sender: FDA-Public Use
  Company Number: US-SUN PHARMACEUTICAL INDUSTRIES LTD-2021R1-298565

PATIENT
  Sex: Male

DRUGS (6)
  1. ZOLEDRONIC [Suspect]
     Active Substance: ZOLEDRONIC ACID
     Indication: FIBROUS DYSPLASIA OF BONE
     Dosage: UNK
     Route: 065
  2. ZOLEDRONIC [Suspect]
     Active Substance: ZOLEDRONIC ACID
     Indication: ALBRIGHT^S DISEASE
  3. PHOSPHATE [Suspect]
     Active Substance: UNSPECIFIED INGREDIENT
     Indication: ALBRIGHT^S DISEASE
  4. PHOSPHATE [Suspect]
     Active Substance: UNSPECIFIED INGREDIENT
     Indication: FIBROUS DYSPLASIA OF BONE
     Dosage: UNK
     Route: 048
  5. CALCITRIOL. [Suspect]
     Active Substance: CALCITRIOL
     Indication: ALBRIGHT^S DISEASE
  6. CALCITRIOL. [Suspect]
     Active Substance: CALCITRIOL
     Indication: FIBROUS DYSPLASIA OF BONE
     Dosage: UNK
     Route: 065

REACTIONS (8)
  - Nephrocalcinosis [Unknown]
  - Drug intolerance [Unknown]
  - Drug ineffective [Unknown]
  - Abdominal discomfort [Unknown]
  - Malabsorption [Unknown]
  - Hypercalciuria [Unknown]
  - Blood parathyroid hormone decreased [Unknown]
  - Fanconi syndrome [Unknown]
